FAERS Safety Report 7636100-2 (Version None)
Quarter: 2011Q3

REPORT INFORMATION
  Report Type: 
  Country: None (occurrence: None)
  Receive Date: 20110726
  Receipt Date: 20110715
  Transmission Date: 20111222
  Serious: Yes (Hospitalization)
  Sender: FDA-Public Use
  Company Number: US-JNJFOC-20110707126

PATIENT
  Sex: Female
  Weight: 90.72 kg

DRUGS (1)
  1. REMICADE [Suspect]
     Indication: RHEUMATOID ARTHRITIS
     Route: 042
     Dates: start: 20020101

REACTIONS (11)
  - BODY HEIGHT DECREASED [None]
  - ARTHRALGIA [None]
  - PRURITUS GENERALISED [None]
  - ERYTHEMA [None]
  - DECREASED APPETITE [None]
  - NEUROPATHY PERIPHERAL [None]
  - FEELING HOT [None]
  - ANKLE OPERATION [None]
  - TENDON DISORDER [None]
  - WEIGHT DECREASED [None]
  - FLUSHING [None]
